FAERS Safety Report 19312857 (Version 1)
Quarter: 2021Q2

REPORT INFORMATION
  Report Type: Spontaneous
  Country: CZ (occurrence: CZ)
  Receive Date: 20210527
  Receipt Date: 20210527
  Transmission Date: 20210717
  Serious: Yes (Hospitalization, Other)
  Sender: FDA-Public Use
  Company Number: CZ-SA-2020SA327308

PATIENT
  Age: 86 Year
  Sex: Female

DRUGS (37)
  1. GUTTALAX [SODIUM PICOSULFATE] [Interacting]
     Active Substance: SODIUM PICOSULFATE
     Indication: CONSTIPATION
     Dosage: DOSAGE FORM (1DF=10?20 GUTTES)
  2. PANADOL [Interacting]
     Active Substance: ACETAMINOPHEN
     Indication: PAIN
     Dosage: 3?4 TIMES PER DAY
  3. CORDARONE [Interacting]
     Active Substance: AMIODARONE HYDROCHLORIDE
     Indication: ATRIAL FIBRILLATION
     Dosage: STRENGTH: 200 MGDOSE: 1?0?0
     Route: 048
  4. EUTHYROX [Interacting]
     Active Substance: LEVOTHYROXINE SODIUM
     Dosage: DOSE REDUCED
  5. HYPNOGEN [Suspect]
     Active Substance: ZOLPIDEM TARTRATE
     Indication: DRUG ABUSE
     Dosage: UNK
     Route: 065
  6. GUAJACURAN [Suspect]
     Active Substance: GUAIFENESIN
     Route: 065
  7. GUTTALAX [SODIUM PICOSULFATE] [Interacting]
     Active Substance: SODIUM PICOSULFATE
     Dosage: 1 DF
  8. CONTROLOC [Interacting]
     Active Substance: PANTOPRAZOLE SODIUM
     Indication: NAUSEA
     Dosage: STRENGTH: 20 MGDOSE: 1?0?0
     Route: 048
  9. DUROGESIC [Interacting]
     Active Substance: FENTANYL
     Indication: POST HERPETIC NEURALGIA
     Dosage: 25 UG, Q3D
     Dates: start: 2015
  10. ORAMELLOX [Interacting]
     Active Substance: MELOXICAM
     Indication: POST HERPETIC NEURALGIA
     Dosage: 15 MG, Q3W
     Route: 048
     Dates: start: 2015
  11. IBALGIN [Interacting]
     Active Substance: IBUPROFEN
     Indication: PAIN
     Dosage: UNK
     Route: 065
  12. OXAZEPAM. [Suspect]
     Active Substance: OXAZEPAM
     Indication: DRUG ABUSE
  13. PANADOL [Interacting]
     Active Substance: ACETAMINOPHEN
     Dosage: 1.5 TABLETS 3?4 TIMES A DAY
     Route: 048
     Dates: start: 2015
  14. AGEN [Interacting]
     Active Substance: AMLODIPINE BESYLATE
     Indication: HYPERTENSION
     Route: 048
  15. ALPRAZOLAM. [Suspect]
     Active Substance: ALPRAZOLAM
     Indication: PRODUCT USED FOR UNKNOWN INDICATION
     Route: 065
  16. CAPTOPRIL. [Suspect]
     Active Substance: CAPTOPRIL
     Indication: PRODUCT USED FOR UNKNOWN INDICATION
  17. TRAZODONE HYDROCHLORIDE. [Suspect]
     Active Substance: TRAZODONE HYDROCHLORIDE
     Indication: PRODUCT USED FOR UNKNOWN INDICATION
  18. METHOTREXATE. [Interacting]
     Active Substance: METHOTREXATE
     Indication: RHEUMATOID ARTHRITIS
     Dosage: 1?0?0 (SUNDAY)
     Route: 048
     Dates: start: 2010
  19. NOVALGIN (METAMIZOLE SODIUM) [Interacting]
     Active Substance: METAMIZOLE SODIUM
     Indication: POST HERPETIC NEURALGIA
  20. ROSUCARD [Interacting]
     Active Substance: ROSUVASTATIN CALCIUM
     Indication: PRODUCT USED FOR UNKNOWN INDICATION
     Dosage: STRENGTH: 20 MGDOSE: 0?0?1
     Route: 048
  21. EUTHYROX [Interacting]
     Active Substance: LEVOTHYROXINE SODIUM
     Indication: AUTOIMMUNE THYROIDITIS
  22. ACIDUM FOLICUM [Interacting]
     Active Substance: FOLIC ACID
     Indication: PRODUCT USED FOR UNKNOWN INDICATION
     Dosage: 1?0?0 ON MONDAY
     Route: 048
  23. CARDILAN [NICOFURANOSE] [Interacting]
     Active Substance: NICOFURANOSE
     Indication: ENCEPHALOPATHY
     Dosage: UNK UNK, QD
     Route: 048
  24. TRAMADOL HYDROCHLORIDE. [Interacting]
     Active Substance: TRAMADOL HYDROCHLORIDE
  25. RAMIPRIL. [Suspect]
     Active Substance: RAMIPRIL
     Indication: PRODUCT USED FOR UNKNOWN INDICATION
  26. PREDNISONE. [Interacting]
     Active Substance: PREDNISONE
     Indication: STEROID THERAPY
     Dosage: STRENGTH: 5 MGDOSE: 1?0?0
     Route: 048
  27. CARDILAN [MAGNESIUM HYDROGEN ASPARTATE/POTASSIUM ASPARTATE] [Interacting]
     Active Substance: MAGNESIUM ASPARTATE\POTASSIUM ASPARTATE
  28. ELIQUIS [Interacting]
     Active Substance: APIXABAN
     Indication: ANTICOAGULANT THERAPY
     Dosage: STRENGTH: 5 MGDOSE: 1?0?1
     Route: 048
  29. DUROGESIC [Interacting]
     Active Substance: FENTANYL
     Indication: PAIN
  30. ORAMELLOX [Interacting]
     Active Substance: MELOXICAM
     Indication: PAIN
     Dosage: 1 DF, QW
     Route: 048
     Dates: start: 2015
  31. OMEPRAZOLE. [Suspect]
     Active Substance: OMEPRAZOLE
     Indication: PRODUCT USED FOR UNKNOWN INDICATION
  32. PREGABALIN. [Concomitant]
     Active Substance: PREGABALIN
     Indication: POST HERPETIC NEURALGIA
     Dosage: UNK
  33. TEZEO [Interacting]
     Active Substance: TELMISARTAN
     Indication: HYPERTENSION
     Dosage: 1?0?0; 12.5 MG/80 MG
     Route: 048
  34. NOVALGIN (METAMIZOLE SODIUM) [Interacting]
     Active Substance: METAMIZOLE SODIUM
     Indication: HYPERTENSION
     Dosage: STRENGTH: 500 MGDOSE: 1?0?1
     Route: 048
     Dates: start: 2015
  35. CONDROSULF [Interacting]
     Active Substance: SODIUM CHONDROITIN SULFATE
     Indication: RHEUMATOID ARTHRITIS
     Dosage: STRENGTH: 800 MGDOSE: 0?0?1
  36. BETALOC ZOK [Interacting]
     Active Substance: METOPROLOL SUCCINATE
     Indication: HYPERTENSION
     Dosage: STRENGTH: 25 MGDOSE: 1?0?0
     Route: 048
  37. CALCICHEW D3 [Interacting]
     Active Substance: CALCIUM\CHOLECALCIFEROL
     Indication: CALCIUM DEFICIENCY
     Dosage: DOSE: 0?0?1
     Route: 048

REACTIONS (30)
  - Incorrect dose administered [Recovered/Resolved]
  - Liver function test increased [Recovered/Resolved]
  - Hyponatraemia [Recovered/Resolved]
  - Discomfort [Recovered/Resolved]
  - Fall [Recovering/Resolving]
  - Urinary retention [Recovered/Resolved]
  - Vertigo [Recovered/Resolved]
  - Hypokalaemia [Recovered/Resolved]
  - Nausea [Recovered/Resolved]
  - Hypertension [Recovering/Resolving]
  - Head discomfort [Recovered/Resolved]
  - Oxygen saturation decreased [Recovered/Resolved]
  - General physical health deterioration [Recovering/Resolving]
  - Condition aggravated [Recovered/Resolved]
  - Anxiety [Recovered/Resolved]
  - Affect lability [Recovered/Resolved]
  - Cognitive disorder [Recovered/Resolved]
  - Drug interaction [Recovered/Resolved]
  - Atrial fibrillation [Recovered/Resolved]
  - Bedridden [Recovered/Resolved]
  - Dehydration [Recovered/Resolved]
  - Delirium [Recovered/Resolved]
  - Reduced facial expression [Recovered/Resolved]
  - Listless [Recovering/Resolving]
  - Confusional state [Recovered/Resolved]
  - Medication error [Recovered/Resolved]
  - Encephalopathy [Recovering/Resolving]
  - Immobile [Recovered/Resolved]
  - Loss of personal independence in daily activities [Recovered/Resolved]
  - Apathy [Recovered/Resolved]

NARRATIVE: CASE EVENT DATE: 2018
